FAERS Safety Report 9233740 (Version 2)
Quarter: 2013Q2

REPORT INFORMATION
  Report Type: Spontaneous
  Country: US (occurrence: US)
  Receive Date: 20130416
  Receipt Date: 20130416
  Transmission Date: 20140414
  Serious: No
  Sender: FDA-Public Use
  Company Number: US-BANPHARM-20131020

PATIENT
  Age: 53 Year
  Sex: Female
  Weight: 81.63 kg

DRUGS (4)
  1. NAPROXEN SODIUM 220MG [Suspect]
     Indication: BACK PAIN
     Dosage: 2 DF, ONCE,
     Route: 048
     Dates: start: 20120602, end: 20120602
  2. PRILOSEC [Concomitant]
  3. METAXALONE [Concomitant]
     Dates: start: 20120427
  4. CLARITIN [Concomitant]
     Dates: start: 201203

REACTIONS (6)
  - Dyspepsia [Recovered/Resolved]
  - Abdominal discomfort [Recovered/Resolved]
  - Flatulence [Recovered/Resolved]
  - Dysphagia [Recovered/Resolved]
  - Sensation of foreign body [Unknown]
  - Faeces discoloured [Recovered/Resolved]
